FAERS Safety Report 13194005 (Version 1)
Quarter: 2017Q1

REPORT INFORMATION
  Report Type: Other
  Country: CA (occurrence: CA)
  Receive Date: 20170207
  Receipt Date: 20170207
  Transmission Date: 20170428
  Serious: Yes (Other)
  Sender: FDA-Public Use
  Company Number: CA-DUCHESNAY INC.-1062844

PATIENT
  Age: 23 Year
  Sex: Female
  Weight: 73 kg

DRUGS (5)
  1. IMURAN [Suspect]
     Active Substance: AZATHIOPRINE
     Route: 065
  2. REMICADE [Suspect]
     Active Substance: INFLIXIMAB
     Route: 042
  3. DICLEGIS [Suspect]
     Active Substance: DOXYLAMINE SUCCINATE\PYRIDOXINE HYDROCHLORIDE
     Indication: VOMITING
     Route: 065
  4. TAPAZOLE [Suspect]
     Active Substance: METHIMAZOLE
     Route: 065
  5. ZOFRAN [Suspect]
     Active Substance: ONDANSETRON HYDROCHLORIDE
     Route: 065

REACTIONS (5)
  - Secondary hyperthyroidism [Not Recovered/Not Resolved]
  - Weight decreased [Not Recovered/Not Resolved]
  - Rectal haemorrhage [Not Recovered/Not Resolved]
  - Haemoglobin decreased [Not Recovered/Not Resolved]
  - Tension headache [Not Recovered/Not Resolved]
